FAERS Safety Report 8432200-8 (Version None)
Quarter: 2012Q2

REPORT INFORMATION
  Report Type: 
  Country: None (occurrence: None)
  Receive Date: 20120613
  Receipt Date: 20120605
  Transmission Date: 20120825
  Serious: Yes (Other)
  Sender: FDA-Public Use
  Company Number: JP-SANOFI-AVENTIS-2011SA083567

PATIENT
  Age: 75 Year
  Sex: Female
  Weight: 43 kg

DRUGS (9)
  1. ENOXAPARIN SODIUM [Suspect]
     Route: 058
     Dates: start: 20111209, end: 20111209
  2. CEFAZOLIN SODIUM [Concomitant]
     Dosage: 1 VIAL TWICE DAILY
     Route: 041
     Dates: start: 20111208, end: 20111209
  3. NATEGLINIDE [Concomitant]
     Route: 048
  4. FLURBIPROFEN [Concomitant]
     Dosage: 1 AMPULE DAILYSTRENGTH: 50MG/5ML
     Route: 041
     Dates: start: 20111207, end: 20111208
  5. ATORVASTATIN CALCIUM [Concomitant]
     Dosage: STRENGTH: 5 MG
     Route: 048
  6. AMLODIPINE [Concomitant]
     Route: 048
  7. CEFAZOLIN SODIUM [Concomitant]
     Dosage: 1 VIA TRICE DAILY
     Route: 041
     Dates: start: 20111207, end: 20111207
  8. TEMOCAPRIL [Concomitant]
     Route: 048
  9. PIOGLITAZONE [Concomitant]
     Route: 048

REACTIONS (4)
  - HEPATIC FUNCTION ABNORMAL [None]
  - GAMMA-GLUTAMYLTRANSFERASE INCREASED [None]
  - ASPARTATE AMINOTRANSFERASE INCREASED [None]
  - WHITE BLOOD CELL COUNT DECREASED [None]
